FAERS Safety Report 24605717 (Version 2)
Quarter: 2025Q1

REPORT INFORMATION
  Report Type: Report from Study
  Country: TH (occurrence: TH)
  Receive Date: 20241111
  Receipt Date: 20250213
  Transmission Date: 20250409
  Serious: No
  Sender: TAKEDA
  Company Number: TH-TAKEDA-2023TUS105432

PATIENT
  Age: 31 Year
  Sex: Female

DRUGS (1)
  1. IXAZOMIB [Suspect]
     Active Substance: IXAZOMIB
     Indication: Plasma cell myeloma

REACTIONS (2)
  - No adverse event [Unknown]
  - Inappropriate schedule of product administration [Unknown]
